FAERS Safety Report 5637467-7 (Version None)
Quarter: 2008Q1

REPORT INFORMATION
  Report Type: 
  Country: None (occurrence: None)
  Receive Date: 20080225
  Receipt Date: 20080220
  Transmission Date: 20080703
  Serious: Yes (Death, Life-Threatening, Hospitalization)
  Sender: FDA-Public Use
  Company Number: DE-BOEHRINGER INGELHEIM GMBH, GERMANY-2008-DE-01079DE

PATIENT
  Sex: Female

DRUGS (7)
  1. SPIRIVA [Suspect]
     Indication: RESPIRATORY FAILURE
     Route: 055
     Dates: start: 20050120
  2. VIANI FORTE [Suspect]
     Indication: RESPIRATORY FAILURE
     Route: 055
     Dates: start: 20050120
  3. DILTIAZEM RET. [Concomitant]
     Indication: TACHYCARDIA
     Dosage: 120 MG-0-90 MG
     Route: 048
     Dates: start: 20041126, end: 20050211
  4. PREDNISOLONE [Concomitant]
     Indication: ALVEOLITIS
     Dosage: 25 MG-0-0, 30 MG0-0-, 12,5 MG-0-0
     Route: 048
     Dates: start: 20040909
  5. TORSEMIDE [Concomitant]
     Indication: HYPERTENSION
     Route: 048
     Dates: start: 20040910
  6. ALBUTEROL [Concomitant]
     Indication: RESPIRATORY FAILURE
     Dosage: AS REQUIRED
     Route: 055
     Dates: start: 20050120
  7. CALCIUMBRAUSE [Concomitant]
     Indication: SUPPLEMENTATION THERAPY
     Route: 048
     Dates: start: 20050120

REACTIONS (2)
  - ORAL HERPES [None]
  - TOXIC EPIDERMAL NECROLYSIS [None]
